FAERS Safety Report 4515770-1 (Version None)
Quarter: 2004Q4

REPORT INFORMATION
  Report Type: 
  Country: None (occurrence: None)
  Receive Date: 20041129
  Receipt Date: 20041110
  Transmission Date: 20050328
  Serious: Yes (Other)
  Sender: FDA-Public Use
  Company Number: DSA_25396_2004

PATIENT
  Age: 44 Year
  Sex: Male

DRUGS (15)
  1. TAVOR [Suspect]
     Indication: SCHIZOPHRENIA
     Dosage: 5 MG Q DAY; SL
     Route: 060
     Dates: start: 20040727, end: 20040729
  2. TAVOR [Suspect]
     Indication: SCHIZOPHRENIA
     Dosage: 5 MG Q DAY; SL
     Route: 060
     Dates: start: 20040725, end: 20040725
  3. TAVOR [Suspect]
     Indication: SCHIZOPHRENIA
     Dosage: 2.5 MG Q DAY; SL
     Route: 060
     Dates: start: 20040726, end: 20040726
  4. TAVOR [Suspect]
     Indication: SCHIZOPHRENIA
     Dosage: 10 MG Q DAY; SL
     Route: 060
     Dates: start: 20040730, end: 20040730
  5. TAVOR [Suspect]
     Indication: SCHIZOPHRENIA
     Dosage: 5 MG Q DAY; SL
     Route: 060
     Dates: start: 20040731, end: 20040801
  6. TAVOR [Suspect]
     Indication: SCHIZOPHRENIA
     Dosage: 7.5 MG Q DAY; SL
     Route: 060
     Dates: start: 20040802, end: 20040804
  7. TAVOR [Suspect]
     Indication: SCHIZOPHRENIA
     Dosage: 2.5 MG Q DAY; SL
     Route: 060
     Dates: start: 20040805, end: 20040808
  8. ABILIFY [Suspect]
     Dosage: 30 MG Q DAY;
     Route: 065
     Dates: start: 20040729
  9. AKINETON [Suspect]
     Dosage: 4 MG Q DAY;
     Route: 065
     Dates: start: 20040726, end: 20040730
  10. AKINETON [Suspect]
     Dosage: DF
     Route: 065
     Dates: start: 20040725, end: 20040725
  11. ABILIFY [Suspect]
     Dosage: 15 MG Q DAY,
     Route: 065
     Dates: start: 20040727, end: 20040729
  12. AKINETON [Suspect]
     Dosage: 4 MG Q DAY;
     Route: 065
     Dates: start: 20040816
  13. NOZINAN [Suspect]
     Dosage: 150 MG Q DAY;
     Route: 065
     Dates: start: 20040727, end: 20040728
  14. RISPERDAL [Suspect]
     Dosage: 5 MG Q DAY;
     Route: 065
     Dates: end: 20040726
  15. RISPERDAL [Suspect]
     Dosage: 3 MG Q DAY;
     Route: 065
     Dates: start: 20040727, end: 20040728

REACTIONS (5)
  - ASTHENIA [None]
  - DELIRIUM [None]
  - DISORIENTATION [None]
  - DRUG LEVEL DECREASED [None]
  - SPEECH DISORDER [None]
